FAERS Safety Report 20850005 (Version 7)
Quarter: 2023Q1

REPORT INFORMATION
  Report Type: Spontaneous
  Country: US (occurrence: US)
  Receive Date: 20220519
  Receipt Date: 20230202
  Transmission Date: 20230418
  Serious: No
  Sender: FDA-Public Use
  Company Number: US-PFIZER INC-202200714165

PATIENT
  Age: 65 Year
  Sex: Female

DRUGS (4)
  1. IBRANCE [Suspect]
     Active Substance: PALBOCICLIB
     Dosage: 75 MG
  2. IBRANCE [Suspect]
     Active Substance: PALBOCICLIB
     Dosage: 75 MG, CYCLIC (5 DAYS ON, TWO DAYS OFF)
     Route: 048
  3. IBRANCE [Suspect]
     Active Substance: PALBOCICLIB
     Dosage: 75 MG, CYCLIC (4 DAYS ON, 3 DAYS OFF FOR 21 DAYS THEN 7 DAYS OFF)
     Route: 048
  4. IBRANCE [Suspect]
     Active Substance: PALBOCICLIB
     Dosage: 75 MG, CYCLIC (1 TABL BY MOUTH 1X DAILY TAKEN WITH OR WITHOUT FOOD FOR 21DAYS FOLLOWED BY 7DAYS OFF)
     Route: 048

REACTIONS (4)
  - Full blood count decreased [Unknown]
  - Neutrophil count decreased [Unknown]
  - Off label use [Unknown]
  - Product use issue [Unknown]
